FAERS Safety Report 8513237-7 (Version None)
Quarter: 2012Q3

REPORT INFORMATION
  Report Type: 
  Country: None (occurrence: None)
  Receive Date: 20120716
  Receipt Date: 20120706
  Transmission Date: 20120928
  Serious: Yes (Death)
  Sender: FDA-Public Use
  Company Number: US-BAXTER-2012BAX010696

PATIENT

DRUGS (1)
  1. SYMPT.X_GLUTAMINE 480.00 G_POWDER FOR SOLUTION_BOTTLE, GLASS [Suspect]
     Route: 065

REACTIONS (1)
  - DEATH [None]
